FAERS Safety Report 9068620 (Version 2)
Quarter: 2013Q2

REPORT INFORMATION
  Report Type: Spontaneous
  Country: US (occurrence: US)
  Receive Date: 20130206
  Receipt Date: 20130410
  Transmission Date: 20140414
  Serious: Yes (Disabling)
  Sender: FDA-Public Use
  Company Number: US-PFIZER INC-2013048047

PATIENT
  Age: 52 Year
  Sex: Male
  Weight: 127 kg

DRUGS (3)
  1. NEURONTIN [Suspect]
     Indication: NEUROPATHY PERIPHERAL
     Dosage: UNK
     Dates: start: 2002
  2. NEURONTIN [Suspect]
     Dosage: 600 MG, 3X/DAY
  3. LYRICA [Suspect]
     Indication: NEUROPATHY PERIPHERAL
     Dosage: UNK

REACTIONS (4)
  - Walking disability [Unknown]
  - Motor dysfunction [Unknown]
  - Neuropathy peripheral [Unknown]
  - Pain [Unknown]
